FAERS Safety Report 8958226 (Version 1)
Quarter: 2012Q4

REPORT INFORMATION
  Report Type: 
  Country: FR (occurrence: FR)
  Receive Date: 20121211
  Receipt Date: 20121211
  Transmission Date: 20130627
  Serious: Yes (Other)
  Sender: FDA-Public Use
  Company Number: PHHY2012FR113060

PATIENT
  Age: 7 Year
  Sex: Male

DRUGS (2)
  1. ILARIS [Suspect]
     Indication: CHRONIC INFANTILE NEUROLOGICAL CUTANEOUS AND ARTICULAR SYNDROME
     Dosage: 1 DF, every 8 weeks
     Route: 058
     Dates: start: 201010
  2. PNEUMOVAX 23 [Suspect]
     Indication: IMMUNISATION
     Dosage: 1 DF, UNK
     Route: 058
     Dates: start: 201011, end: 201011

REACTIONS (6)
  - Vaccination site reaction [Recovered/Resolved]
  - Injected limb mobility decreased [Recovered/Resolved]
  - Pain in extremity [Recovered/Resolved]
  - Erythema [Recovered/Resolved]
  - Limb deformity [Recovered/Resolved]
  - Pyrexia [Recovered/Resolved]
